FAERS Safety Report 20461809 (Version 1)
Quarter: 2022Q1

REPORT INFORMATION
  Report Type: Spontaneous
  Country: US (occurrence: None)
  Receive Date: 20220211
  Receipt Date: 20220211
  Transmission Date: 20220424
  Serious: Yes (Other)
  Sender: FDA-Public Use
  Company Number: None

PATIENT
  Age: 57 Year
  Sex: Female
  Weight: 82.35 kg

DRUGS (6)
  1. SOTROVIMAB [Suspect]
     Active Substance: SOTROVIMAB
     Indication: COVID-19
     Route: 042
     Dates: start: 20220210, end: 20220210
  2. HYDROXYCHLOROQUINE [Concomitant]
     Active Substance: HYDROXYCHLOROQUINE
     Dates: start: 20220101
  3. Zyrtec 10mg daily [Concomitant]
     Dates: start: 20220101
  4. Methotrexate 2.5mg weekly [Concomitant]
     Dates: start: 20220101
  5. Micardis 80mg daily [Concomitant]
     Dates: start: 20220101
  6. Norvasc 5mg daily [Concomitant]
     Dates: start: 20220101

REACTIONS (5)
  - Infusion related reaction [None]
  - Blood pressure increased [None]
  - Tremor [None]
  - Seizure like phenomena [None]
  - Therapy cessation [None]

NARRATIVE: CASE EVENT DATE: 20220210
